FAERS Safety Report 4633557-6 (Version None)
Quarter: 2005Q2

REPORT INFORMATION
  Report Type: 
  Country: None (occurrence: None)
  Receive Date: 20050331
  Receipt Date: 20041209
  Transmission Date: 20051028
  Serious: Yes (Other)
  Sender: FDA-Public Use
  Company Number: 20041220

PATIENT
  Age: 8 Year
  Sex: Male
  Weight: 67.1324 kg

DRUGS (1)
  1. ALINIA [Suspect]
     Dosage: 500 MG, ROUTE 047
     Dates: start: 20041101

REACTIONS (1)
  - VASODILATATION [None]
